FAERS Safety Report 4805683-X (Version None)
Quarter: 2005Q4

REPORT INFORMATION
  Report Type: 
  Country: None (occurrence: None)
  Receive Date: 20051021
  Receipt Date: 20050811
  Transmission Date: 20060501
  Serious: Yes (Other)
  Sender: FDA-Public Use
  Company Number: FR-ROCHE-414085

PATIENT
  Age: 16 Year
  Sex: Male
  Weight: 67 kg

DRUGS (2)
  1. ROACCUTANE [Suspect]
     Indication: ACNE
     Route: 048
     Dates: start: 20040615, end: 20040615
  2. ROACCUTANE [Suspect]
     Route: 048
     Dates: start: 20050301, end: 20050731

REACTIONS (4)
  - ASTHENIA [None]
  - EPISTAXIS [None]
  - HYPOGLYCAEMIA [None]
  - MALAISE [None]
